FAERS Safety Report 9746761 (Version 1)
Quarter: 2013Q4

REPORT INFORMATION
  Report Type: Report from Study
  Country: BE (occurrence: BE)
  Receive Date: 20131211
  Receipt Date: 20131211
  Transmission Date: 20140711
  Serious: Yes (Hospitalization)
  Sender: FDA-Public Use
  Company Number: BE-ABBVIE-13P-013-1176029-00

PATIENT
  Age: 57 Year
  Sex: Female
  Weight: 74 kg

DRUGS (9)
  1. HUMIRA [Suspect]
     Indication: ANKYLOSING SPONDYLITIS
     Route: 050
     Dates: start: 20100715
  2. TOTALIP [Suspect]
     Indication: HYPERCHOLESTEROLAEMIA
     Dates: start: 20120711, end: 20130321
  3. NSAID^S [Suspect]
     Indication: PRODUCT USED FOR UNKNOWN INDICATION
  4. SUMATRIPTAN [Concomitant]
     Indication: MIGRAINE
     Dates: start: 20090130, end: 20130321
  5. SELOKEN [Concomitant]
     Indication: HYPERTENSION
     Dosage: UNKNOWN, DAILY
     Dates: end: 20130321
  6. OMEPRAZOLE [Concomitant]
     Indication: GASTROOESOPHAGEAL REFLUX DISEASE
     Dates: start: 1999, end: 20130321
  7. PIROXICAM [Concomitant]
     Indication: ANKYLOSING SPONDYLITIS
     Dates: end: 20130114
  8. PARACETAMOL [Concomitant]
     Indication: ANKYLOSING SPONDYLITIS
     Dosage: INTERMITTENT
     Dates: start: 2009
  9. L-THYROXINE [Concomitant]
     Indication: HORMONE REPLACEMENT THERAPY
     Dates: start: 20120603, end: 20130321

REACTIONS (1)
  - Hepatitis toxic [Recovered/Resolved]
